FAERS Safety Report 9862602 (Version 1)
Quarter: 2014Q1

REPORT INFORMATION
  Report Type: Spontaneous
  Country: US (occurrence: US)
  Receive Date: 20140203
  Receipt Date: 20140203
  Transmission Date: 20141002
  Serious: Yes (Death, Other)
  Sender: FDA-Public Use
  Company Number: CHPA2014US001756

PATIENT
  Age: 33 Year
  Sex: Female

DRUGS (7)
  1. ACETAM/DIPHEN CITRATE [Suspect]
     Route: 048
  2. HYDROXYCHLOROQUINE [Suspect]
     Dosage: 200 MG, UNK
     Route: 048
  3. METFORMIN [Suspect]
     Dosage: 500 MG, UNK
     Route: 048
  4. HYDROXYZINE [Suspect]
     Route: 048
  5. COCAINE [Suspect]
     Route: 048
  6. ALPRAZOLAM [Suspect]
     Route: 048
  7. PREGABALIN [Suspect]
     Dosage: 150 MG, UNK
     Route: 048

REACTIONS (7)
  - Completed suicide [Fatal]
  - Toxicity to various agents [Fatal]
  - Bundle branch block left [Unknown]
  - Respiratory depression [Unknown]
  - Bradycardia [Unknown]
  - Hypotension [Unknown]
  - Mydriasis [Unknown]
